FAERS Safety Report 4318806-6 (Version None)
Quarter: 2004Q1

REPORT INFORMATION
  Report Type: 
  Country: None (occurrence: None)
  Receive Date: 20040318
  Receipt Date: 20040311
  Transmission Date: 20041129
  Serious: Yes (Hospitalization)
  Sender: FDA-Public Use
  Company Number: FR-GLAXOSMITHKLINE-B0326272A

PATIENT
  Age: 30 Year
  Sex: Male

DRUGS (7)
  1. AMOXICILLIN [Suspect]
     Dates: start: 20031014, end: 20031024
  2. FRAXODI [Suspect]
     Dosage: .8ML PER DAY
     Route: 058
     Dates: start: 20031014, end: 20031024
  3. BIPROFENID [Suspect]
     Route: 048
     Dates: start: 20031018, end: 20031024
  4. PROFENID [Concomitant]
     Dosage: 200MG PER DAY
     Route: 042
     Dates: start: 20031010, end: 20031017
  5. PERFALGAN [Concomitant]
     Dates: start: 20031014, end: 20031020
  6. TRAMADOL HCL [Concomitant]
     Dates: start: 20031024
  7. MOPRAL [Concomitant]
     Dosage: 20MG UNKNOWN
     Dates: start: 20031018, end: 20031024

REACTIONS (4)
  - ABDOMINAL PAIN UPPER [None]
  - HEPATIC ENZYME INCREASED [None]
  - HEPATITIS [None]
  - RED BLOOD CELL COUNT DECREASED [None]
